FAERS Safety Report 6307056-X (Version None)
Quarter: 2009Q3

REPORT INFORMATION
  Report Type: 
  Country: None (occurrence: None)
  Receive Date: 20090812
  Receipt Date: 20090806
  Transmission Date: 20100115
  Serious: Yes (Other)
  Sender: FDA-Public Use
  Company Number: US-ABBOTT-09P-163-0589738-00

PATIENT
  Sex: Male
  Weight: 74.91 kg

DRUGS (13)
  1. TRICOR [Suspect]
     Indication: BLOOD TRIGLYCERIDES INCREASED
     Dates: start: 20030101
  2. TRUVADA [Concomitant]
     Indication: HIV INFECTION
  3. ZIAGEN [Concomitant]
     Indication: HIV INFECTION
  4. KALETRA [Concomitant]
     Indication: HIV INFECTION
  5. LEXAPRO [Concomitant]
     Indication: ATTENTION DEFICIT/HYPERACTIVITY DISORDER
  6. LEXAPRO [Concomitant]
     Indication: DEPRESSION
  7. VALIUM [Concomitant]
     Indication: NYSTAGMUS
  8. PREVACID [Concomitant]
     Indication: GASTROOESOPHAGEAL REFLUX DISEASE
  9. TYLENOL W/ CODEINE [Concomitant]
     Indication: NEUROPATHY PERIPHERAL
  10. ASPIRIN [Concomitant]
     Indication: DRUG USE FOR UNKNOWN INDICATION
  11. XYZAL [Concomitant]
     Indication: SEASONAL ALLERGY
  12. NASACORT [Concomitant]
     Indication: SEASONAL ALLERGY
  13. NASACORT [Concomitant]
     Indication: RHINITIS

REACTIONS (3)
  - FEELING ABNORMAL [None]
  - OSTEOPOROSIS [None]
  - STRESS FRACTURE [None]
